FAERS Safety Report 9907729 (Version 5)
Quarter: 2014Q3

REPORT INFORMATION
  Report Type: Report from Study
  Country: US (occurrence: US)
  Receive Date: 20140219
  Receipt Date: 20140711
  Transmission Date: 20150326
  Serious: Yes (Hospitalization, Other)
  Sender: FDA-Public Use
  Company Number: US-BIOGENIDEC-2014BI013719

PATIENT
  Age: 59 Year
  Sex: Female

DRUGS (14)
  1. TECFIDERA [Suspect]
     Active Substance: DIMETHYL FUMARATE
     Indication: MULTIPLE SCLEROSIS
     Route: 048
  2. TECFIDERA [Suspect]
     Active Substance: DIMETHYL FUMARATE
     Indication: MULTIPLE SCLEROSIS
     Route: 048
     Dates: start: 201311
  3. SINGULAIR [Concomitant]
     Active Substance: MONTELUKAST SODIUM
  4. GABAPENTIN. [Concomitant]
     Active Substance: GABAPENTIN
  5. SB LORATADINE [Concomitant]
  6. ZOLOFT [Concomitant]
     Active Substance: SERTRALINE HYDROCHLORIDE
  7. METHOTREXATE [Concomitant]
     Active Substance: METHOTREXATE
  8. AMANTADINE [Concomitant]
     Active Substance: AMANTADINE
  9. SYNTHROID [Concomitant]
     Active Substance: LEVOTHYROXINE SODIUM
  10. GLIPIZIDE. [Concomitant]
     Active Substance: GLIPIZIDE
  11. LASIX [Concomitant]
     Active Substance: FUROSEMIDE
  12. SIMVASTATIN. [Concomitant]
     Active Substance: SIMVASTATIN
  13. ATACAND [Concomitant]
     Active Substance: CANDESARTAN CILEXETIL
  14. ACTOS [Concomitant]
     Active Substance: PIOGLITAZONE HYDROCHLORIDE

REACTIONS (6)
  - Convulsion [Not Recovered/Not Resolved]
  - Blood glucose decreased [Unknown]
  - Flushing [Not Recovered/Not Resolved]
  - Upper limb fracture [Unknown]
  - Fall [Recovered/Resolved]
  - Decreased interest [Unknown]

NARRATIVE: CASE EVENT DATE: 20140121
